FAERS Safety Report 8808601 (Version 1)
Quarter: 2012Q4

REPORT INFORMATION
  Report Type: 
  Country: DE (occurrence: DE)
  Receive Date: 20120926
  Receipt Date: 20120926
  Transmission Date: 20130627
  Serious: Yes (Other)
  Sender: FDA-Public Use
  Company Number: PHHY2012DE082426

PATIENT
  Sex: Male

DRUGS (3)
  1. TEGRETOL [Suspect]
     Indication: PETIT MAL EPILEPSY
     Dosage: 200 mg, TID
     Route: 048
  2. EFIENT [Interacting]
     Indication: CORONARY ARTERY DISEASE
     Route: 048
     Dates: end: 20120917
  3. ANTIHYPERTENSIVES [Concomitant]
     Indication: HYPERTENSION

REACTIONS (3)
  - Angina pectoris [Unknown]
  - Feeling abnormal [Unknown]
  - Drug interaction [Unknown]
